FAERS Safety Report 16152353 (Version 7)
Quarter: 2020Q4

REPORT INFORMATION
  Report Type: Spontaneous
  Country: US (occurrence: US)
  Receive Date: 20190403
  Receipt Date: 20201125
  Transmission Date: 20210113
  Serious: No
  Sender: FDA-Public Use
  Company Number: US-SA-2019SA088842

PATIENT

DRUGS (1)
  1. DUPIXENT [Suspect]
     Active Substance: DUPILUMAB
     Indication: DERMATITIS ATOPIC
     Dosage: 300 MG, QOW
     Route: 058
     Dates: start: 20190124

REACTIONS (15)
  - Blood bilirubin increased [Unknown]
  - Inappropriate schedule of product administration [Unknown]
  - Laboratory test abnormal [Unknown]
  - Dysphemia [Unknown]
  - Erythema [Unknown]
  - Hypersensitivity [Unknown]
  - Injection site pain [Unknown]
  - Eye disorder [Unknown]
  - Condition aggravated [Unknown]
  - Muscle twitching [Unknown]
  - Ocular hyperaemia [Unknown]
  - Self-consciousness [Unknown]
  - Therapeutic response shortened [Unknown]
  - Dermatitis atopic [Unknown]
  - Injection site discomfort [Unknown]
